FAERS Safety Report 4700401-8 (Version None)
Quarter: 2005Q2

REPORT INFORMATION
  Report Type: 
  Country: None (occurrence: None)
  Receive Date: 20050627
  Receipt Date: 20040521
  Transmission Date: 20051028
  Serious: Yes (Hospitalization)
  Sender: FDA-Public Use
  Company Number: PL-ROCHE-368743

PATIENT
  Age: 69 Year
  Sex: Male

DRUGS (3)
  1. INTERFERON ALFA-2A [Suspect]
     Indication: METASTATIC MALIGNANT MELANOMA
     Dosage: DAYS 11 AND 18.
     Route: 058
     Dates: start: 20040322
  2. THYMOSIN ALPHA 1 [Suspect]
     Indication: METASTATIC MALIGNANT MELANOMA
     Dosage: SFROM DAY 8 TO 15 AND FROM DAYS 15 TO 18.
     Route: 058
     Dates: start: 20040322
  3. DACARBAZINE [Suspect]
     Indication: METASTATIC MALIGNANT MELANOMA
     Dosage: UNIT: MG/MQ. ON DAY 1.
     Route: 042
     Dates: start: 20040322

REACTIONS (1)
  - DEHYDRATION [None]
